FAERS Safety Report 8611157-0 (Version None)
Quarter: 2012Q3

REPORT INFORMATION
  Report Type: 
  Country: None (occurrence: None)
  Receive Date: 20120806
  Receipt Date: 20120723
  Transmission Date: 20120928
  Serious: Yes (Other)
  Sender: FDA-Public Use
  Company Number: 2012SA052802

PATIENT
  Sex: Female

DRUGS (1)
  1. CAPZASIN-HP [Suspect]
     Dates: start: 20120719

REACTIONS (3)
  - APPLICATION SITE PAIN [None]
  - INSOMNIA [None]
  - APPLICATION SITE WARMTH [None]
